FAERS Safety Report 9262939 (Version 3)
Quarter: 2013Q2

REPORT INFORMATION
  Report Type: Report from Study
  Country: US (occurrence: US)
  Receive Date: 20130430
  Receipt Date: 20130625
  Transmission Date: 20140414
  Serious: Yes (Hospitalization)
  Sender: FDA-Public Use
  Company Number: US-AMGEN-USACT2013028136

PATIENT
  Age: 61 Year
  Sex: Female
  Weight: 78.64 kg

DRUGS (5)
  1. ETANERCEPT [Suspect]
     Indication: PSORIASIS
     Dosage: 1 ML, Q2WK
     Route: 030
     Dates: start: 20130220
  2. COZAAR [Concomitant]
     Dosage: 50 MG, UNK
     Route: 048
     Dates: start: 20070615
  3. CYCLOBENZAPRINE [Concomitant]
     Dosage: 5 MG, UNK
     Route: 048
     Dates: start: 20130225, end: 20130228
  4. NAPROXEN [Concomitant]
     Dosage: 375 MG, UNK
     Route: 048
     Dates: start: 20130225, end: 20130228
  5. CALCITRIN [Concomitant]
     Dosage: UNK
     Route: 061
     Dates: start: 20121231, end: 20130114

REACTIONS (1)
  - Colitis ischaemic [Recovered/Resolved]
